FAERS Safety Report 6076543-4 (Version None)
Quarter: 2009Q1

REPORT INFORMATION
  Report Type: 
  Country: None (occurrence: None)
  Receive Date: 20090211
  Receipt Date: 20090128
  Transmission Date: 20090719
  Serious: No
  Sender: FDA-Public Use
  Company Number: DSU-2009-00229

PATIENT
  Age: 75 Year
  Sex: Female
  Weight: 74.8435 kg

DRUGS (6)
  1. WELCHOL [Suspect]
     Indication: HYPERCHOLESTEROLAEMIA
     Dosage: 3750 MG (1875 MG, BID), PER ORAL
     Route: 048
     Dates: start: 20081001, end: 20081001
  2. GLUCOTROL [Concomitant]
  3. AVANDIA (ROSIGLITAZONE MALEATE) (ROSIGLITAZONE MALEATE) [Concomitant]
  4. TOPROL XL (METOPROLOL SUCCINATE) (METOPROLOL SUCCINATE) [Concomitant]
  5. VALIUM [Concomitant]
  6. COZAAR [Concomitant]

REACTIONS (3)
  - CHOKING [None]
  - DYSPHAGIA [None]
  - FOREIGN BODY TRAUMA [None]
